FAERS Safety Report 13041012 (Version 6)
Quarter: 2017Q1

REPORT INFORMATION
  Report Type: Report from Study
  Country: FR (occurrence: FR)
  Receive Date: 20161219
  Receipt Date: 20170315
  Transmission Date: 20170428
  Serious: Yes (Other)
  Sender: FDA-Public Use
  Company Number: FR-UCBSA-2016047542

PATIENT
  Age: 70 Year
  Sex: Male

DRUGS (15)
  1. METOJECT [Concomitant]
     Active Substance: METHOTREXATE SODIUM
     Dosage: 7.5 MG, QS (HOUR OF SLEEP)
     Dates: start: 20150616, end: 201612
  2. LEVOTHYROX [Concomitant]
     Active Substance: LEVOTHYROXINE
     Indication: HYPOTHYROIDISM
     Dosage: 200 ?G, ONCE DAILY (QD)
  3. SPECIAFOLDINE [Concomitant]
     Active Substance: FOLIC ACID
     Indication: RHEUMATOID ARTHRITIS
     Dosage: 15 MG, ONCE DAILY (QD)
     Dates: start: 201305
  4. METOJECT [Concomitant]
     Active Substance: METHOTREXATE SODIUM
     Indication: RHEUMATOID ARTHRITIS
     Dosage: 6 MG, QS (HOUR OF SLEEP)
     Dates: start: 20130504, end: 20140227
  5. DAFALGAN [Concomitant]
     Active Substance: ACETAMINOPHEN
     Indication: RHEUMATOID ARTHRITIS
     Dosage: UNK, ONCE DAILY (QD)
     Dates: start: 20141212
  6. LERCAN [Concomitant]
     Active Substance: LERCANIDIPINE
     Indication: HYPERTENSION
     Dosage: UNK, ONCE DAILY (QD)
     Dates: start: 201506
  7. CERTOLIZUMAB PEGOL RA [Suspect]
     Active Substance: CERTOLIZUMAB PEGOL
     Indication: RHEUMATOID ARTHRITIS
     Dosage: 200 MG, EV 2 WEEKS(QOW)
     Dates: start: 20131129, end: 2016
  8. METOJECT [Concomitant]
     Active Substance: METHOTREXATE SODIUM
     Dosage: 10 MG, QS (HOUR OF SLEEP)
     Dates: start: 20140228, end: 20141014
  9. METOJECT [Concomitant]
     Active Substance: METHOTREXATE SODIUM
     Dosage: 2.5 MG, ONCE DAILY (QD)
  10. METOJECT [Concomitant]
     Active Substance: METHOTREXATE SODIUM
     Dosage: 15 MG, QS (HOUR OF SLEEP)
     Dates: start: 201612
  11. COAPROVEL [Concomitant]
     Active Substance: HYDROCHLOROTHIAZIDE\IRBESARTAN
     Indication: HYPERTENSION
     Dosage: UNK, ONCE DAILY (QD)
     Dates: start: 201506
  12. OMEXEL [Concomitant]
     Active Substance: TAMSULOSIN HYDROCHLORIDE
     Indication: BENIGN PROSTATIC HYPERPLASIA
     Dosage: UNK, ONCE DAILY (QD)
  13. METOJECT [Concomitant]
     Active Substance: METHOTREXATE SODIUM
     Dosage: 15 MG, QS (HOUR OF SLEEP)
     Dates: start: 20141014, end: 201506
  14. LEVOTHYROX [Concomitant]
     Active Substance: LEVOTHYROXINE
     Dosage: 25 ?G, ONCE DAILY (QD)
  15. APRANAX [Concomitant]
     Active Substance: NAPROXEN
     Indication: RHEUMATOID ARTHRITIS
     Dosage: UNK, ONCE DAILY (QD)
     Dates: start: 20160107, end: 2016

REACTIONS (1)
  - Herpes zoster [Recovered/Resolved]

NARRATIVE: CASE EVENT DATE: 201606
